FAERS Safety Report 14769386 (Version 1)
Quarter: 2018Q2

REPORT INFORMATION
  Report Type: Report from Study
  Country: US (occurrence: US)
  Receive Date: 20180417
  Receipt Date: 20180417
  Transmission Date: 20180711
  Serious: Yes (Other)
  Sender: FDA-Public Use
  Company Number: US-IPSEN BIOPHARMACEUTICALS, INC.-2018-05463

PATIENT
  Sex: Male

DRUGS (1)
  1. DYSPORT [Suspect]
     Active Substance: ABOBOTULINUMTOXINA
     Indication: MUSCLE SPASTICITY
     Dosage: NOT REPORTED
     Route: 065
     Dates: start: 20180323, end: 20180323

REACTIONS (12)
  - Asthenia [Unknown]
  - Dysphonia [Unknown]
  - Eyelid ptosis [Unknown]
  - Dysphagia [Unknown]
  - Fall [Unknown]
  - Posture abnormal [Unknown]
  - Malaise [Not Recovered/Not Resolved]
  - Bladder disorder [Not Recovered/Not Resolved]
  - Dysarthria [Unknown]
  - Neuromuscular toxicity [Unknown]
  - Multiple sclerosis [Unknown]
  - Memory impairment [Unknown]

NARRATIVE: CASE EVENT DATE: 2018
